FAERS Safety Report 18642933 (Version 1)
Quarter: 2020Q4

REPORT INFORMATION
  Report Type: Spontaneous
  Country: US (occurrence: US)
  Receive Date: 20201220
  Receipt Date: 20201220
  Transmission Date: 20210114
  Serious: Yes (Life-Threatening, Hospitalization, Disabling)
  Sender: FDA-Public Use
  Company Number: None

PATIENT
  Age: 37 Year
  Sex: Female
  Weight: 56.25 kg

DRUGS (3)
  1. NATURES MADE DAILY VITAMIN FOR WOMEN [Concomitant]
  2. ALPRAZOLAM. [Suspect]
     Active Substance: ALPRAZOLAM
  3. CLONAZEPAM. [Suspect]
     Active Substance: CLONAZEPAM
     Indication: ANXIETY
     Dates: start: 20111001, end: 20190915

REACTIONS (12)
  - Seizure like phenomena [None]
  - Loss of personal independence in daily activities [None]
  - Hallucination [None]
  - Tachyphrenia [None]
  - Palpitations [None]
  - Drug abuser [None]
  - Pain [None]
  - Panic disorder [None]
  - Fatigue [None]
  - Psychotic disorder [None]
  - Anxiety [None]
  - Suicidal ideation [None]

NARRATIVE: CASE EVENT DATE: 20150701
